FAERS Safety Report 5500815-2 (Version None)
Quarter: 2007Q4

REPORT INFORMATION
  Report Type: 
  Country: None (occurrence: None)
  Receive Date: 20071029
  Receipt Date: 20071023
  Transmission Date: 20080405
  Serious: Yes (Other)
  Sender: FDA-Public Use
  Company Number: B0430159A

PATIENT
  Age: 2 Day
  Sex: Female

DRUGS (1)
  1. PAXIL [Suspect]

REACTIONS (5)
  - DRUG EXPOSURE DURING PREGNANCY [None]
  - DRUG WITHDRAWAL SYNDROME [None]
  - HYPERTONIA [None]
  - IRRITABILITY [None]
  - TONIC CONVULSION [None]
